FAERS Safety Report 18156728 (Version 1)
Quarter: 2020Q3

REPORT INFORMATION
  Report Type: Report from Study
  Country: US (occurrence: US)
  Receive Date: 20200817
  Receipt Date: 20200817
  Transmission Date: 20201103
  Serious: Yes (Hospitalization)
  Sender: FDA-Public Use
  Company Number: US-EISAI MEDICAL RESEARCH-EC-2018-039800

PATIENT
  Age: 70 Year
  Sex: Female
  Weight: 73 kg

DRUGS (14)
  1. LENVIMA [Suspect]
     Active Substance: LENVATINIB
     Indication: THYROID CANCER
     Route: 048
     Dates: start: 20180503, end: 201806
  2. LENVIMA [Suspect]
     Active Substance: LENVATINIB
     Dosage: HELD FOR SURGERY
     Route: 048
     Dates: start: 2019
  3. LENVIMA [Suspect]
     Active Substance: LENVATINIB
     Route: 048
     Dates: start: 201806, end: 201910
  4. XARELTO [Concomitant]
     Active Substance: RIVAROXABAN
  5. LENVIMA [Suspect]
     Active Substance: LENVATINIB
     Route: 048
     Dates: start: 20200522
  6. SYNTHROID [Concomitant]
     Active Substance: LEVOTHYROXINE SODIUM
  7. IRON [Concomitant]
     Active Substance: IRON
  8. HYDRALAZINE [Concomitant]
     Active Substance: HYDRALAZINE HYDROCHLORIDE
  9. PROBIOTIC [Concomitant]
     Active Substance: PROBIOTICS NOS
  10. TYLENOL [Concomitant]
     Active Substance: ACETAMINOPHEN
  11. BUMETANIDE. [Concomitant]
     Active Substance: BUMETANIDE
  12. MAGNESIUM [Concomitant]
     Active Substance: MAGNESIUM
  13. POTASSIUM [Concomitant]
     Active Substance: POTASSIUM
  14. LOSARTAN. [Concomitant]
     Active Substance: LOSARTAN

REACTIONS (20)
  - Retinal haemorrhage [Unknown]
  - Alanine aminotransferase increased [Not Recovered/Not Resolved]
  - Dry mouth [Unknown]
  - Palmar-plantar erythrodysaesthesia syndrome [Unknown]
  - Visual impairment [Unknown]
  - Diarrhoea [Recovering/Resolving]
  - Aspartate aminotransferase increased [Not Recovered/Not Resolved]
  - Fatigue [Not Recovered/Not Resolved]
  - Headache [Unknown]
  - Abdominal pain upper [Unknown]
  - Eye pruritus [Unknown]
  - Stomatitis [Unknown]
  - Hypertension [Recovering/Resolving]
  - Myalgia [Unknown]
  - Proteinuria [Not Recovered/Not Resolved]
  - Weight decreased [Unknown]
  - Benign breast neoplasm [Recovering/Resolving]
  - Arthralgia [Not Recovered/Not Resolved]
  - Oedema peripheral [Not Recovered/Not Resolved]
  - Dry eye [Unknown]

NARRATIVE: CASE EVENT DATE: 201805
